FAERS Safety Report 5411475-3 (Version None)
Quarter: 2007Q3

REPORT INFORMATION
  Report Type: 
  Country: None (occurrence: None)
  Receive Date: 20070810
  Receipt Date: 20070730
  Transmission Date: 20080115
  Serious: Yes (Congenital Anomaly)
  Sender: FDA-Public Use
  Company Number: US-SHR-US-2007-028828

PATIENT
  Sex: Male
  Weight: 2.95 kg

DRUGS (1)
  1. BETASERON [Suspect]
     Dosage: UNK, UNK
     Dates: start: 20060503, end: 20061123

REACTIONS (1)
  - SPINA BIFIDA [None]
